FAERS Safety Report 13647707 (Version 4)
Quarter: 2017Q3

REPORT INFORMATION
  Report Type: Spontaneous
  Country: US (occurrence: US)
  Receive Date: 20170613
  Receipt Date: 20170831
  Transmission Date: 20171127
  Serious: Yes (Hospitalization, Other)
  Sender: FDA-Public Use
  Company Number: US-PFIZER INC-2017249826

PATIENT
  Age: 56 Year
  Sex: Female
  Weight: 61.23 kg

DRUGS (5)
  1. ESTRING [Suspect]
     Active Substance: ESTRADIOL
     Indication: ATROPHIC VULVOVAGINITIS
  2. ESTRING [Suspect]
     Active Substance: ESTRADIOL
     Indication: CYSTITIS NONINFECTIVE
     Dosage: 2 MG, UNK
     Dates: start: 20170514, end: 20170519
  3. ESTRING [Suspect]
     Active Substance: ESTRADIOL
     Indication: CYSTITIS INTERSTITIAL
     Dosage: UNK
     Route: 067
     Dates: end: 20170602
  4. ESTRING [Suspect]
     Active Substance: ESTRADIOL
     Indication: HORMONE REPLACEMENT THERAPY
  5. AMITRIPTYLINE [Concomitant]
     Active Substance: AMITRIPTYLINE
     Indication: BLADDER DISORDER
     Dosage: 10 MG, AS NEEDED [BED TIME, 1X NIGHT]
     Dates: start: 20150110

REACTIONS (9)
  - Nausea [Recovered/Resolved]
  - Discomfort [Recovered/Resolved]
  - Sinusitis [Recovered/Resolved]
  - Loss of consciousness [Recovered/Resolved]
  - Insomnia [Recovered/Resolved]
  - Product quality issue [Recovered/Resolved]
  - Headache [Recovered/Resolved]
  - Palpitations [Recovered/Resolved]
  - Head discomfort [Recovered/Resolved]

NARRATIVE: CASE EVENT DATE: 20170514
